FAERS Safety Report 20445341 (Version 1)
Quarter: 2022Q1

REPORT INFORMATION
  Report Type: Spontaneous
  Country: US (occurrence: None)
  Receive Date: 20220208
  Receipt Date: 20220208
  Transmission Date: 20220423
  Serious: Yes (Death)
  Sender: FDA-Public Use
  Company Number: None

PATIENT
  Age: 60 Year
  Sex: Female

DRUGS (3)
  1. CAPECITABINE [Suspect]
     Active Substance: CAPECITABINE
     Indication: Malignant nipple neoplasm female
     Dosage: TAKE 1500 MG BY MOUTH TWICE DAILY FOR 14 DAYS ON AND 7 DAYS OFF?
     Route: 048
     Dates: start: 20211027
  2. EXEMESTANE [Concomitant]
     Active Substance: EXEMESTANE
  3. IBRANCE [Concomitant]
     Active Substance: PALBOCICLIB

REACTIONS (1)
  - Death [None]

NARRATIVE: CASE EVENT DATE: 20220202
